FAERS Safety Report 5152071-5 (Version None)
Quarter: 2006Q4

REPORT INFORMATION
  Report Type: 
  Country: None (occurrence: None)
  Receive Date: 20061116
  Receipt Date: 20061107
  Transmission Date: 20070319
  Serious: Yes (Hospitalization)
  Sender: FDA-Public Use
  Company Number: JP-JNJFOC-20061102690

PATIENT
  Sex: Female
  Weight: 57 kg

DRUGS (11)
  1. REMICADE [Suspect]
     Route: 042
  2. REMICADE [Suspect]
     Route: 042
  3. REMICADE [Suspect]
     Route: 042
  4. REMICADE [Suspect]
     Indication: RHEUMATOID ARTHRITIS
     Route: 042
  5. PREDONINE [Suspect]
     Indication: DRUG USE FOR UNKNOWN INDICATION
     Route: 048
  6. RHEUMATREX [Suspect]
     Indication: RHEUMATOID ARTHRITIS
     Route: 048
  7. AMLODIPINE BESYLATE [Concomitant]
     Route: 048
  8. TENORMIN [Concomitant]
     Route: 048
  9. AZULFIDINE EN-TABS [Concomitant]
     Route: 048
  10. EVISTA [Concomitant]
     Route: 048
  11. GASTER D [Concomitant]
     Route: 048

REACTIONS (1)
  - LYMPH NODE TUBERCULOSIS [None]
